FAERS Safety Report 21283405 (Version 1)
Quarter: 2022Q3

REPORT INFORMATION
  Report Type: Spontaneous
  Country: US (occurrence: US)
  Receive Date: 20220901
  Receipt Date: 20220901
  Transmission Date: 20221027
  Serious: No
  Sender: FDA-Public Use
  Company Number: US-MYLANLABS-2022M1085306

PATIENT
  Age: 73 Year
  Sex: Male
  Weight: 70.31 kg

DRUGS (4)
  1. LEVOTHYROXINE [Suspect]
     Active Substance: LEVOTHYROXINE
     Indication: Thyroid hormones decreased
     Dosage: 25 MICROGRAM, AM (ONCE A DAY BEFORE BREAKFAST )
     Route: 048
     Dates: start: 20220713
  2. PHENOBARBITAL [Concomitant]
     Active Substance: PHENOBARBITAL
     Indication: Seizure
     Dosage: 100 MILLIGRAM
     Route: 065
     Dates: start: 1965
  3. LIPITOR [Concomitant]
     Active Substance: ATORVASTATIN CALCIUM
     Indication: Blood cholesterol abnormal
     Dosage: 10 MILLIGRAM
     Route: 065
     Dates: start: 2004
  4. TOPROL XL [Concomitant]
     Active Substance: METOPROLOL SUCCINATE
     Indication: Hypertension
     Dosage: 25 MILLIGRAM, BID
     Route: 065
     Dates: start: 199812

REACTIONS (4)
  - Irritable bowel syndrome [Unknown]
  - Abnormal faeces [Unknown]
  - Defaecation urgency [Unknown]
  - Micturition disorder [Unknown]

NARRATIVE: CASE EVENT DATE: 20220716
